FAERS Safety Report 14900541 (Version 10)
Quarter: 2023Q1

REPORT INFORMATION
  Report Type: Spontaneous
  Country: US (occurrence: US)
  Receive Date: 20180516
  Receipt Date: 20230117
  Transmission Date: 20230418
  Serious: No
  Sender: FDA-Public Use
  Company Number: US-PFIZER INC-2017406967

PATIENT
  Age: 10 Year
  Sex: Male
  Weight: 28.12 kg

DRUGS (4)
  1. GENOTROPIN [Suspect]
     Active Substance: SOMATROPIN
     Indication: Growth hormone deficiency
     Dosage: 1.8 MG, DAILY
     Dates: start: 201409
  2. GENOTROPIN [Suspect]
     Active Substance: SOMATROPIN
     Indication: Head circumference abnormal
     Dosage: 2.2 MG, DAILY
     Dates: start: 20140918
  3. GENOTROPIN [Suspect]
     Active Substance: SOMATROPIN
     Dosage: 2.2 MG, DAILY [ONE INJECTION]
     Dates: start: 201412
  4. GENOTROPIN [Suspect]
     Active Substance: SOMATROPIN
     Dosage: 2.4 MG
     Dates: start: 2017

REACTIONS (13)
  - Device use issue [Unknown]
  - Drug resistance [Unknown]
  - High density lipoprotein decreased [Unknown]
  - Low density lipoprotein increased [Unknown]
  - High density lipoprotein increased [Unknown]
  - Non-high-density lipoprotein cholesterol increased [Unknown]
  - Oestradiol decreased [Unknown]
  - Red cell distribution width increased [Unknown]
  - Albumin globulin ratio increased [Unknown]
  - Blood testosterone increased [Unknown]
  - Sex hormone binding globulin decreased [Unknown]
  - Blood glucose increased [Unknown]
  - Device use issue [Unknown]

NARRATIVE: CASE EVENT DATE: 20171214
